FAERS Safety Report 9197277 (Version 2)
Quarter: 2013Q2

REPORT INFORMATION
  Report Type: Report from Study
  Country: DE (occurrence: DE)
  Receive Date: 20130328
  Receipt Date: 20130415
  Transmission Date: 20140414
  Serious: Yes (Hospitalization)
  Sender: FDA-Public Use
  Company Number: DE-ROCHE-1207820

PATIENT
  Age: 58 Year
  Sex: Female
  Weight: 61 kg

DRUGS (3)
  1. BEVACIZUMAB [Suspect]
     Indication: OVARIAN CANCER
     Dosage: LAST DOSE BEFORE ONSET OF SAE 13/MAR/2013
     Route: 042
     Dates: start: 20130313
  2. CARBOPLATIN [Suspect]
     Indication: OVARIAN CANCER
     Dosage: LAST DOSE BEFORE ONSET OF SAE 13/MAR/2013
     Route: 042
     Dates: start: 20130313
  3. PACLITAXEL [Suspect]
     Indication: OVARIAN CANCER
     Dosage: LAST DOSE BEFORE ONSET OF SAE 13/MAR/2013
     Route: 042
     Dates: start: 20130313

REACTIONS (1)
  - General physical health deterioration [Recovered/Resolved]
